FAERS Safety Report 6127184-1 (Version None)
Quarter: 2009Q1

REPORT INFORMATION
  Report Type: 
  Country: None (occurrence: None)
  Receive Date: 20090320
  Receipt Date: 20090313
  Transmission Date: 20090719
  Serious: Yes (Other)
  Sender: FDA-Public Use
  Company Number: US-GENENTECH-278586

PATIENT

DRUGS (1)
  1. AVASTIN [Suspect]
     Indication: BRAIN NEOPLASM

REACTIONS (1)
  - DURAL FISTULA [None]
